FAERS Safety Report 17145380 (Version 2)
Quarter: 2020Q1

REPORT INFORMATION
  Report Type: Spontaneous
  Country: US (occurrence: US)
  Receive Date: 20191212
  Receipt Date: 20200106
  Transmission Date: 20200409
  Serious: No
  Sender: FDA-Public Use
  Company Number: US-009507513-1912USA004316

PATIENT
  Sex: Female

DRUGS (3)
  1. FOLLISTIM AQ [Suspect]
     Active Substance: FOLLITROPIN
     Indication: INFERTILITY FEMALE
     Dosage: STRENGTH: 300 IU/0.36 ML, DOSE: AS DIRECTED, FREQUENCY: AS DIRECTED
     Route: 058
     Dates: start: 20190802
  2. FOLLISTIM AQ [Suspect]
     Active Substance: FOLLITROPIN
  3. PREGNYL [Suspect]
     Active Substance: CHORIOGONADOTROPIN ALFA
     Indication: INFERTILITY FEMALE
     Dosage: STRENGTH; 10000 UNITS, DOSE: AS DIRECTED, FREQUENCY: AS DIRECTED, ROUTE: AS DIRECTED
     Dates: start: 20190805

REACTIONS (1)
  - Headache [Unknown]

NARRATIVE: CASE EVENT DATE: 2019
